FAERS Safety Report 20755990 (Version 1)
Quarter: 2022Q2

REPORT INFORMATION
  Report Type: Report from Study
  Country: EG (occurrence: EG)
  Receive Date: 20220427
  Receipt Date: 20220427
  Transmission Date: 20220721
  Serious: Yes (Other)
  Sender: FDA-Public Use
  Company Number: EG-NOVARTISPH-NVSC2022EG089511

PATIENT
  Sex: Female

DRUGS (1)
  1. HYRIMOZ [Suspect]
     Active Substance: ADALIMUMAB-ADAZ
     Indication: Behcet^s syndrome
     Dosage: UNK
     Route: 065

REACTIONS (4)
  - Blindness [Not Recovered/Not Resolved]
  - Hormone level abnormal [Unknown]
  - Pain [Unknown]
  - Drug ineffective for unapproved indication [Not Recovered/Not Resolved]
